FAERS Safety Report 19940477 (Version 3)
Quarter: 2021Q4

REPORT INFORMATION
  Report Type: Spontaneous
  Country: IT (occurrence: IT)
  Receive Date: 20211011
  Receipt Date: 20211025
  Transmission Date: 20220303
  Serious: Yes (Other)
  Sender: FDA-Public Use
  Company Number: IT-002147023-NVSC2021IT131783

PATIENT
  Age: 56 Year
  Sex: Female

DRUGS (11)
  1. EPIRUBICIN [Suspect]
     Active Substance: EPIRUBICIN
     Indication: Intraductal proliferative breast lesion
     Dosage: UNK (PROTOCOL FEC 90, EVERY 21 DAYS)
     Route: 065
  2. TRASTUZUMAB [Suspect]
     Active Substance: TRASTUZUMAB
     Indication: Intraductal proliferative breast lesion
     Dosage: UNK, Q21D, START APR-2017 (EVERY 21 DAYS FOR 18 AD
     Route: 065
     Dates: start: 201704
  3. DOCETAXEL [Suspect]
     Active Substance: DOCETAXEL
     Indication: Intraductal proliferative breast lesion
     Dosage: UNK (100 MG/MQ, EVERY 21 DAYS FOR 3 CYCLES)
     Route: 065
  4. DOCETAXEL [Suspect]
     Active Substance: DOCETAXEL
     Dosage: 75 MG/MQ, EVERY 21 DAYS FOR 3 CYCLES (START DATE: APR-2017)
     Route: 065
     Dates: start: 201704
  5. ANASTROZOLE [Suspect]
     Active Substance: ANASTROZOLE
     Indication: Intraductal proliferative breast lesion
     Dosage: 1 MILLIGRAM, QD (1 MG, QD), START DATE: OCT-2011
     Route: 065
  6. PERTUZUMAB [Suspect]
     Active Substance: PERTUZUMAB
     Indication: Intraductal proliferative breast lesion
     Dosage: UNK, 3XW (THREE TIMES A WEEK) START DATE: APR-2017
     Route: 065
     Dates: start: 201704
  7. LETROZOLE [Concomitant]
     Active Substance: LETROZOLE
     Indication: Intraductal proliferative breast lesion
     Dosage: 2.5 MILLIGRAM
     Route: 065
  8. CYCLOPHOSPHAMIDE [Concomitant]
     Active Substance: CYCLOPHOSPHAMIDE
     Indication: Intraductal proliferative breast lesion
     Dosage: UNK (EVERY 21 DAYS FOR 3 CYCLES)
     Route: 065
  9. FLUOROURACIL [Concomitant]
     Active Substance: FLUOROURACIL
     Indication: Intraductal proliferative breast lesion
     Dosage: UNK (EVERY 21 DAYS FOR 3 CYCLES)
     Route: 065
  10. CAPECITABINE [Concomitant]
     Active Substance: CAPECITABINE
     Indication: Intraductal proliferative breast lesion
     Dosage: 1000 MILLIGRAM, QD (REDUCED DOSAGES IN CONSIDERATION OF HEMATOLOGICAL TOXICITY)
     Route: 065
  11. LAPATINIB [Concomitant]
     Active Substance: LAPATINIB
     Indication: Intraductal proliferative breast lesion
     Dosage: 750 MILLIGRAM, QD (750 MG, QD)
     Route: 065

REACTIONS (7)
  - Neoplasm malignant [Unknown]
  - Soft tissue disorder [Unknown]
  - Malignant neoplasm progression [Unknown]
  - Intraductal proliferative breast lesion [Unknown]
  - Invasive ductal breast carcinoma [Unknown]
  - Metastases to lung [Unknown]
  - Thrombocytopenia [Unknown]

NARRATIVE: CASE EVENT DATE: 20200501
